FAERS Safety Report 8013216-2 (Version None)
Quarter: 2011Q4

REPORT INFORMATION
  Report Type: 
  Country: None (occurrence: None)
  Receive Date: 20111229
  Receipt Date: 20111229
  Transmission Date: 20120403
  Serious: Yes (Hospitalization)
  Sender: FDA-Public Use
  Company Number: None

PATIENT
  Age: 57 Year
  Sex: Female

DRUGS (1)
  1. ARTHROTEC [Suspect]
     Indication: BACK PAIN
     Dosage: ONE TABLET
     Route: 048

REACTIONS (7)
  - HAEMATEMESIS [None]
  - ASTHENIA [None]
  - MALAISE [None]
  - CHILLS [None]
  - DIARRHOEA [None]
  - FALL [None]
  - MUSCULOSKELETAL PAIN [None]
